FAERS Safety Report 7076791-0 (Version None)
Quarter: 2010Q4

REPORT INFORMATION
  Report Type: 
  Country: None (occurrence: None)
  Receive Date: 20101101
  Receipt Date: 20101021
  Transmission Date: 20110411
  Serious: Yes (Other)
  Sender: FDA-Public Use
  Company Number: CA-JNJFOC-20101006827

PATIENT
  Age: 67 Year
  Sex: Male
  Weight: 66 kg

DRUGS (10)
  1. REMICADE [Suspect]
     Indication: ANKYLOSING SPONDYLITIS
     Dosage: 9 INFUSIONS
     Route: 042
  2. CELEBREX [Concomitant]
     Indication: ARTHRITIS
     Route: 048
  3. ALLOPURINOL [Concomitant]
     Route: 048
  4. ASPIRIN [Concomitant]
     Route: 048
  5. ACTONEL [Concomitant]
     Route: 048
  6. RAMIPRIL [Concomitant]
     Route: 048
  7. TAMSULOSIN [Concomitant]
     Route: 048
  8. RABEPRAZOLE SODIUM [Concomitant]
     Route: 048
  9. GLIMEPIRIDE [Concomitant]
     Route: 048
  10. METFORMIN [Concomitant]
     Route: 048

REACTIONS (1)
  - LIP AND/OR ORAL CAVITY CANCER [None]
